FAERS Safety Report 9909702 (Version 2)
Quarter: 2014Q1

REPORT INFORMATION
  Report Type: Spontaneous
  Country: US (occurrence: US)
  Receive Date: 20140219
  Receipt Date: 20140219
  Transmission Date: 20141002
  Serious: No
  Sender: FDA-Public Use
  Company Number: US-PFIZER INC-2014021513

PATIENT
  Age: 41 Year
  Sex: Female

DRUGS (3)
  1. CELEBREX [Suspect]
     Indication: ARTHRITIS
     Dosage: 200 MG, 2X/DAY
     Route: 048
  2. TRAMADOL [Concomitant]
     Dosage: UNK
  3. TYLENOL [Concomitant]
     Dosage: UNK

REACTIONS (2)
  - Extra dose administered [Unknown]
  - Gait disturbance [Unknown]
